FAERS Safety Report 4557110-8 (Version None)
Quarter: 2005Q1

REPORT INFORMATION
  Report Type: 
  Country: None (occurrence: None)
  Receive Date: 20050118
  Receipt Date: 20050104
  Transmission Date: 20050727
  Serious: Yes (Hospitalization, Disabling, Other)
  Sender: FDA-Public Use
  Company Number: 210349

PATIENT
  Age: 55 Year
  Sex: Male
  Weight: 68 kg

DRUGS (9)
  1. MABTHERA(RITUXIMAB) CONC FOR SOLUTION FOR INFUSION [Suspect]
     Indication: LYMPHOMA
     Dosage: 375 MG/M2 , INTRAVENOUS
     Route: 042
     Dates: start: 20040805
  2. MABTHERA(RITUXIMAB) CONC FOR SOLUTION FOR INFUSION [Suspect]
     Indication: LYMPHOMA
     Dosage: 375 MG/M2 , INTRAVENOUS
     Route: 042
     Dates: start: 20040819
  3. MABTHERA(RITUXIMAB) CONC FOR SOLUTION FOR INFUSION [Suspect]
     Indication: LYMPHOMA
     Dosage: 375 MG/M2 , INTRAVENOUS
     Route: 042
     Dates: start: 20040927
  4. CYCLOPHOSPHAMIDE [Concomitant]
  5. HYDROXYDAUNORUBICIN (DOXORUBICIN HYDROCHLORIDE, DOXORUBICIN) [Concomitant]
  6. ONCOVIN [Concomitant]
  7. ETOPOSIDE [Concomitant]
  8. PREDNISONE [Concomitant]
  9. METHOTREXATE [Concomitant]

REACTIONS (4)
  - AMAUROSIS [None]
  - CENTRAL NERVOUS SYSTEM LYMPHOMA [None]
  - NON-HODGKIN'S LYMPHOMA RECURRENT [None]
  - OPTIC ATROPHY [None]
